FAERS Safety Report 20474010 (Version 1)
Quarter: 2022Q1

REPORT INFORMATION
  Report Type: Spontaneous
  Country: US (occurrence: US)
  Receive Date: 20220215
  Receipt Date: 20220215
  Transmission Date: 20220423
  Serious: Yes (Death)
  Sender: FDA-Public Use
  Company Number: US-CHEPLA-2022000738

PATIENT
  Age: 22 Year

DRUGS (2)
  1. CLONAZEPAM [Interacting]
     Active Substance: CLONAZEPAM
     Dosage: UNK 26 CLONAZEPAM PILLS
     Route: 065
  2. BUPRENORPHINE [Interacting]
     Active Substance: BUPRENORPHINE
     Indication: Drug use disorder
     Dosage: UNK
     Route: 065

REACTIONS (3)
  - Drug interaction [Fatal]
  - Accidental overdose [Fatal]
  - Left ventricular hypertrophy [Fatal]
